FAERS Safety Report 20977091 (Version 1)
Quarter: 2022Q2

REPORT INFORMATION
  Report Type: Other
  Country: CN (occurrence: None)
  Receive Date: 20220617
  Receipt Date: 20220617
  Transmission Date: 20220721
  Serious: Yes (Hospitalization, Other)
  Sender: FDA-Public Use
  Company Number: CN-Invatech-000253

PATIENT
  Age: 9 Year
  Sex: Female

DRUGS (5)
  1. PYRIDOSTIGMINE BROMIDE [Suspect]
     Active Substance: PYRIDOSTIGMINE BROMIDE
     Dosage: 06 MG/KG/DAY
     Route: 048
  2. HUMAN IMMUNOGLOBULIN G [Suspect]
     Active Substance: HUMAN IMMUNOGLOBULIN G
     Indication: Myasthenia gravis
     Route: 042
  3. METHYLPREDNISOLONE [Suspect]
     Active Substance: METHYLPREDNISOLONE
     Indication: Myasthenia gravis
     Dosage: FOR 03 DAYS
     Route: 042
  4. METHYLPREDNISOLONE [Suspect]
     Active Substance: METHYLPREDNISOLONE
     Indication: Myasthenia gravis
     Dosage: FOR 03 DAYS
     Route: 048
  5. PYRIDOSTIGMINE BROMIDE [Suspect]
     Active Substance: PYRIDOSTIGMINE BROMIDE
     Indication: Myasthenia gravis
     Dosage: PYRIDOSTIGMINE?BROMIDE WERE GRADUALLY REDUCED
     Route: 048

REACTIONS (4)
  - Therapy non-responder [Unknown]
  - Respiratory tract infection [Unknown]
  - Condition aggravated [Unknown]
  - Myasthenia gravis crisis [Recovered/Resolved]
